FAERS Safety Report 21309962 (Version 1)
Quarter: 2022Q3

REPORT INFORMATION
  Report Type: Spontaneous
  Country: US (occurrence: US)
  Receive Date: 20220909
  Receipt Date: 20220909
  Transmission Date: 20221027
  Serious: Yes (Hospitalization, Other)
  Sender: FDA-Public Use
  Company Number: US-BEH-2022149182

PATIENT
  Age: 45 Year
  Sex: Male

DRUGS (14)
  1. HIZENTRA [Suspect]
     Active Substance: HUMAN IMMUNOGLOBULIN G
     Indication: Immunodeficiency common variable
     Dosage: 12 GRAM, QW
     Route: 058
  2. HIZENTRA [Suspect]
     Active Substance: HUMAN IMMUNOGLOBULIN G
     Dosage: UNK
     Route: 065
  3. TRAZODONE HCL [Concomitant]
     Active Substance: TRAZODONE HYDROCHLORIDE
  4. AZELASTINE [Concomitant]
     Active Substance: AZELASTINE
  5. BROMELAINS [Concomitant]
     Active Substance: BROMELAINS
  6. DULOXETINE [Concomitant]
     Active Substance: DULOXETINE
  7. FISH OIL [Concomitant]
     Active Substance: FISH OIL
  8. LORATADINE [Concomitant]
     Active Substance: LORATADINE
  9. LOSARTAN POTASSIUM [Concomitant]
     Active Substance: LOSARTAN POTASSIUM
  10. MOMETASONE [Concomitant]
     Active Substance: MOMETASONE
  11. QUERCETIN [Concomitant]
     Active Substance: QUERCETIN
  12. VITAMIN C [Concomitant]
     Active Substance: ASCORBIC ACID
  13. VITAMIN D3 [Concomitant]
     Active Substance: CHOLECALCIFEROL
  14. ZINC [Concomitant]
     Active Substance: ZINC

REACTIONS (5)
  - Pneumonia [Unknown]
  - Inappropriate schedule of product administration [Unknown]
  - Device issue [Unknown]
  - Syringe issue [Unknown]
  - Product dose omission issue [Unknown]
